FAERS Safety Report 8008905-X (Version None)
Quarter: 2011Q4

REPORT INFORMATION
  Report Type: 
  Country: None (occurrence: None)
  Receive Date: 20111221
  Receipt Date: 20111205
  Transmission Date: 20120403
  Serious: Yes (Death)
  Sender: FDA-Public Use
  Company Number: 2011AP003057

PATIENT
  Age: 80 Year
  Sex: Male

DRUGS (3)
  1. AMIODARONE HCL [Suspect]
     Indication: PRODUCT USED FOR UNKNOWN INDICATION
     Dosage: IV
     Route: 042
  2. AMIODARONE HCL [Suspect]
     Indication: PRODUCT USED FOR UNKNOWN INDICATION
     Dosage: PO
     Route: 048
  3. COLCHICINE [Suspect]
     Indication: GOUT

REACTIONS (3)
  - DRUG INTERACTION [None]
  - TOXICITY TO VARIOUS AGENTS [None]
  - RENAL IMPAIRMENT [None]
